FAERS Safety Report 4352381-5 (Version None)
Quarter: 2004Q2

REPORT INFORMATION
  Report Type: 
  Country: None (occurrence: None)
  Receive Date: 20040423
  Receipt Date: 20030610
  Transmission Date: 20050107
  Serious: Yes (Hospitalization)
  Sender: FDA-Public Use
  Company Number: CIP03001743

PATIENT
  Age: 56 Year
  Sex: Female

DRUGS (11)
  1. MACROBID [Suspect]
     Indication: VAGINITIS ATROPHIC
     Dosage: ORAL
     Route: 048
     Dates: start: 20030130
  2. REMIFEMIN (CIMICIFUGA) [Suspect]
     Indication: MENOPAUSAL SYMPTOMS
     Dosage: 20 MG TWICE DAILY, ORAL
     Route: 048
     Dates: start: 20021001, end: 20030205
  3. SIMVASTATIN [Suspect]
     Dosage: ORAL
     Route: 048
  4. EFFEXOR XR [Suspect]
     Dosage: ORAL
     Route: 048
  5. CALCIUM CARBONATE [Concomitant]
  6. MULTIVIT (VITAMINS NOS) [Concomitant]
  7. PRAVASTATIN [Concomitant]
  8. ESTER-C (CALCIUM ASCORBATE) [Concomitant]
  9. ECHINACEA ^RATIOPHARM^ (ECHINACEA EXTRACT) [Concomitant]
  10. METABOLIFE (SPIRULINA, SMILAX ARISTOLOCHIIFOLIA ROOT, HERBAL EXTRACTS [Concomitant]
  11. BLACK COHOSH (CIMICIFUGA) [Concomitant]

REACTIONS (11)
  - ALANINE AMINOTRANSFERASE INCREASED [None]
  - ASPARTATE AMINOTRANSFERASE INCREASED [None]
  - BACK PAIN [None]
  - BLOOD ALKALINE PHOSPHATASE INCREASED [None]
  - HEPATIC PAIN [None]
  - HEPATITIS [None]
  - HEPATOMEGALY [None]
  - LIVER FUNCTION TEST ABNORMAL [None]
  - PAIN [None]
  - PYREXIA [None]
  - URINARY TRACT INFECTION [None]
